FAERS Safety Report 16434330 (Version 1)
Quarter: 2019Q2

REPORT INFORMATION
  Report Type: Spontaneous
  Country: MX (occurrence: MX)
  Receive Date: 20190614
  Receipt Date: 20190614
  Transmission Date: 20190711
  Serious: Yes (Other)
  Sender: FDA-Public Use
  Company Number: MX-SA-2019SA156546

PATIENT
  Age: 16 Year
  Sex: Female

DRUGS (2)
  1. DIPHENHYDRAMINE. [Suspect]
     Active Substance: DIPHENHYDRAMINE
     Route: 048
  2. DEXTROMETHORPHAN HYDROBROMIDE. [Suspect]
     Active Substance: DEXTROMETHORPHAN HYDROBROMIDE
     Route: 048

REACTIONS (9)
  - Substance use [Unknown]
  - Anxiety [Recovered/Resolved]
  - Mydriasis [Recovered/Resolved]
  - Toxicity to various agents [Recovered/Resolved]
  - Mucosal disorder [Recovered/Resolved]
  - Hyporeflexia [Recovered/Resolved]
  - Flushing [Recovered/Resolved]
  - Urinary retention [Recovered/Resolved]
  - Gastrointestinal sounds abnormal [Recovered/Resolved]
